FAERS Safety Report 17122942 (Version 1)
Quarter: 2019Q4

REPORT INFORMATION
  Report Type: Report from Study
  Country: US (occurrence: US)
  Receive Date: 20191206
  Receipt Date: 20191206
  Transmission Date: 20200122
  Serious: Yes (Hospitalization)
  Sender: FDA-Public Use
  Company Number: US-EISAI MEDICAL RESEARCH-EC-2019-057010

PATIENT
  Age: 72 Year
  Sex: Male

DRUGS (3)
  1. LENVIMA [Suspect]
     Active Substance: LENVATINIB
     Route: 048
     Dates: start: 20191031
  2. LENVIMA [Suspect]
     Active Substance: LENVATINIB
     Indication: THYROID CANCER
     Route: 048
     Dates: start: 20190524, end: 201906
  3. LENVIMA [Suspect]
     Active Substance: LENVATINIB
     Route: 048
     Dates: start: 201906, end: 20191030

REACTIONS (14)
  - Asthenia [Not Recovered/Not Resolved]
  - Nausea [Recovering/Resolving]
  - Tachycardia [Recovering/Resolving]
  - Blood pressure fluctuation [Recovering/Resolving]
  - Hypertension [Recovered/Resolved]
  - Cholecystitis infective [Recovering/Resolving]
  - Urinary tract infection [Recovered/Resolved]
  - Pyrexia [Not Recovered/Not Resolved]
  - Vomiting [Not Recovered/Not Resolved]
  - Oxygen saturation decreased [Recovered/Resolved]
  - Lethargy [Recovered/Resolved]
  - Cough [Unknown]
  - Aspiration [Recovering/Resolving]
  - Fatigue [Recovering/Resolving]

NARRATIVE: CASE EVENT DATE: 20190528
